FAERS Safety Report 24280370 (Version 1)
Quarter: 2024Q3

REPORT INFORMATION
  Report Type: Spontaneous
  Country: JP (occurrence: JP)
  Receive Date: 20240904
  Receipt Date: 20240904
  Transmission Date: 20241017
  Serious: Yes (Hospitalization, Other)
  Sender: ALEXION PHARMACEUTICALS
  Company Number: JP-AstraZeneca-CH-00693158A

PATIENT
  Age: 49 Year
  Sex: Male

DRUGS (1)
  1. ULTOMIRIS [Suspect]
     Active Substance: RAVULIZUMAB-CWVZ
     Indication: Paroxysmal nocturnal haemoglobinuria
     Dosage: 3000 MILLIGRAM, Q56
     Route: 042
     Dates: start: 20220722, end: 20240411

REACTIONS (4)
  - Brain neoplasm [Unknown]
  - Neoplasm progression [Unknown]
  - General physical health deterioration [Unknown]
  - Fall [Unknown]

NARRATIVE: CASE EVENT DATE: 20240401
